FAERS Safety Report 12631479 (Version 2)
Quarter: 2016Q3

REPORT INFORMATION
  Report Type: Spontaneous
  Country: US (occurrence: US)
  Receive Date: 20160808
  Receipt Date: 20160808
  Transmission Date: 20161109
  Serious: No
  Sender: FDA-Public Use
  Company Number: US-BEH-2015054104

PATIENT

DRUGS (1)
  1. HIZENTRA [Suspect]
     Active Substance: HUMAN IMMUNOGLOBULIN G
     Indication: PRODUCT USED FOR UNKNOWN INDICATION
     Dosage: STOP DATE: ??-FEB-2015

REACTIONS (4)
  - Ill-defined disorder [Unknown]
  - Mucosal cyst of postmastoidectomy cavity [Unknown]
  - Gastrointestinal disorder [Unknown]
  - Malaise [Unknown]
